FAERS Safety Report 7795669-8 (Version None)
Quarter: 2011Q4

REPORT INFORMATION
  Report Type: 
  Country: None (occurrence: None)
  Receive Date: 20111004
  Receipt Date: 20110928
  Transmission Date: 20120403
  Serious: Yes (Hospitalization)
  Sender: FDA-Public Use
  Company Number: JP-GLAXOSMITHKLINE-B0751655A

PATIENT
  Age: 23 Year
  Sex: Male

DRUGS (4)
  1. MYONAL [Concomitant]
     Route: 048
  2. MYONAL [Concomitant]
     Dosage: 40IUAX PER DAY
     Route: 048
  3. VALTREX [Suspect]
     Indication: HERPES ZOSTER
     Dosage: 3000MG PER DAY
  4. VALTREX [Suspect]
     Dosage: 9000MG PER DAY

REACTIONS (2)
  - RENAL FAILURE [None]
  - MULTIPLE DRUG OVERDOSE INTENTIONAL [None]
